FAERS Safety Report 8799105 (Version 3)
Quarter: 2012Q4

REPORT INFORMATION
  Report Type: Spontaneous
  Country: US (occurrence: None)
  Receive Date: 20120914
  Receipt Date: 20120914
  Transmission Date: 20130627
  Serious: Yes (Death, Other)
  Sender: FDA-Public Use
  Company Number: ADR-2012-01687

PATIENT
  Age: 76 Year
  Sex: Female

DRUGS (3)
  1. BACLOFEN INTRATHECAL [Suspect]
     Indication: SPASTICITY
     Dosage: SEE B5
  2. BACLOFEN INTRATHECAL [Suspect]
     Indication: STROKE
     Dosage: SEE B5
  3. SINEMET [Concomitant]

REACTIONS (7)
  - Muscle spasticity [None]
  - Fall [None]
  - Pain in extremity [None]
  - Pain in extremity [None]
  - Insomnia [None]
  - Clonus [None]
  - Condition aggravated [None]
